FAERS Safety Report 11988813 (Version 2)
Quarter: 2016Q1

REPORT INFORMATION
  Report Type: Spontaneous
  Country: US (occurrence: US)
  Receive Date: 20160202
  Receipt Date: 20160202
  Transmission Date: 20160526
  Serious: No
  Sender: FDA-Public Use
  Company Number: US-UCBSA-106156

PATIENT
  Age: 17 Year
  Sex: Female
  Weight: 63.5 kg

DRUGS (1)
  1. KU-METHYLPHENIDATE HYDROCHLORIDE [Suspect]
     Active Substance: METHYLPHENIDATE HYDROCHLORIDE
     Indication: ATTENTION DEFICIT/HYPERACTIVITY DISORDER
     Dosage: TAKES 2 36 MG TABS FOR A TOTAL OF 72 MORNING, EXTENDED RELEASE TABLET
     Route: 048
     Dates: start: 201311, end: 201311

REACTIONS (1)
  - Drug ineffective [Unknown]

NARRATIVE: CASE EVENT DATE: 20131117
